FAERS Safety Report 4553296-X (Version None)
Quarter: 2005Q1

REPORT INFORMATION
  Report Type: 
  Country: None (occurrence: None)
  Receive Date: 20050114
  Receipt Date: 20050105
  Transmission Date: 20050727
  Serious: Yes (Hospitalization, Other)
  Sender: FDA-Public Use
  Company Number: US-JNJFOC-20050101360

PATIENT
  Sex: Female

DRUGS (4)
  1. REOPRO [Suspect]
     Indication: CORONARY ARTERY THROMBOSIS
     Route: 042
  2. ANGIOMAX [Suspect]
     Indication: ANGIOPLASTY
  3. ASPIRIN TAB [Concomitant]
  4. UNFRACTIONATED HEPARIN [Concomitant]
     Route: 042

REACTIONS (13)
  - CORONARY ARTERY THROMBOSIS [None]
  - DRUG INTERACTION [None]
  - GASTRITIS [None]
  - GASTROINTESTINAL HAEMORRHAGE [None]
  - HAEMOPTYSIS [None]
  - HYPOTENSION [None]
  - HYPOXIA [None]
  - MOUTH HAEMORRHAGE [None]
  - MYOCARDIAL INFARCTION [None]
  - POST PROCEDURAL COMPLICATION [None]
  - POST PROCEDURAL PAIN [None]
  - RENAL FAILURE [None]
  - SURGICAL PROCEDURE REPEATED [None]
